FAERS Safety Report 5121026-9 (Version None)
Quarter: 2006Q4

REPORT INFORMATION
  Report Type: 
  Country: None (occurrence: None)
  Receive Date: 20061005
  Receipt Date: 20060809
  Transmission Date: 20070319
  Serious: Yes (Hospitalization)
  Sender: FDA-Public Use
  Company Number: PL-MERCK-0608POL00003

PATIENT
  Age: 58 Year
  Sex: Female

DRUGS (6)
  1. SINGULAIR [Suspect]
     Indication: ASTHMA
     Route: 048
     Dates: start: 20030101, end: 20030101
  2. CEFUROXIME [Concomitant]
     Indication: PYREXIA
     Route: 065
     Dates: start: 20030101, end: 20030101
  3. CEFUROXIME [Concomitant]
     Indication: ASTHMA
     Route: 065
     Dates: start: 20030101, end: 20030101
  4. CLARITHROMYCIN [Concomitant]
     Indication: PYREXIA
     Route: 065
     Dates: start: 20030101, end: 20030101
  5. CLARITHROMYCIN [Concomitant]
     Indication: ASTHMA
     Route: 065
     Dates: start: 20030101, end: 20030101
  6. ASPIRIN [Concomitant]
     Indication: DRUG USE FOR UNKNOWN INDICATION
     Route: 065
     Dates: start: 20030101, end: 20030101

REACTIONS (4)
  - ALLERGIC GRANULOMATOUS ANGIITIS [None]
  - BLOOD PRESSURE INCREASED [None]
  - GOITRE [None]
  - PYREXIA [None]
